FAERS Safety Report 16541820 (Version 1)
Quarter: 2019Q3

REPORT INFORMATION
  Report Type: Spontaneous
  Country: US (occurrence: US)
  Receive Date: 20190708
  Receipt Date: 20190708
  Transmission Date: 20191004
  Serious: Yes (Hospitalization)
  Sender: FDA-Public Use
  Company Number: US-SA-2019SA179276

PATIENT
  Age: 55 Year
  Sex: Female

DRUGS (1)
  1. TOUJEO [Suspect]
     Active Substance: INSULIN GLARGINE
     Indication: TYPE 2 DIABETES MELLITUS
     Dosage: 21 U, BID
     Route: 065
     Dates: start: 201904

REACTIONS (5)
  - Vision blurred [Unknown]
  - Inappropriate schedule of product administration [Unknown]
  - Product dose omission [Recovered/Resolved]
  - Transient ischaemic attack [Unknown]
  - Product storage error [Unknown]
